FAERS Safety Report 9316812 (Version 7)
Quarter: 2022Q2

REPORT INFORMATION
  Report Type: Other
  Country: CA (occurrence: CA)
  Receive Date: 20130530
  Receipt Date: 20220418
  Transmission Date: 20220720
  Serious: Yes (Hospitalization, Other)
  Sender: FDA-Public Use
  Company Number: CA-ROCHE-1229732

PATIENT
  Age: 16 Year
  Sex: Female
  Weight: 69 kg

DRUGS (7)
  1. XOLAIR [Suspect]
     Active Substance: OMALIZUMAB
     Indication: Asthma
     Route: 058
     Dates: start: 20090831
  2. XOLAIR [Suspect]
     Active Substance: OMALIZUMAB
     Route: 058
     Dates: start: 20130524
  3. XOLAIR [Suspect]
     Active Substance: OMALIZUMAB
     Route: 058
     Dates: start: 20120424
  4. ALVESCO [Concomitant]
     Active Substance: CICLESONIDE
  5. SINGULAIR [Concomitant]
     Active Substance: MONTELUKAST SODIUM
  6. VENTOLIN [Concomitant]
     Active Substance: ALBUTEROL SULFATE
  7. EBASTINE [Concomitant]
     Active Substance: EBASTINE

REACTIONS (12)
  - Asthma [Unknown]
  - Influenza [Unknown]
  - Hypoventilation [Unknown]
  - Vomiting [Unknown]
  - Feeling hot [Unknown]
  - Pallor [Unknown]
  - Malaise [Unknown]
  - Allergy to animal [Not Recovered/Not Resolved]
  - Fatigue [Unknown]
  - Heart rate increased [Unknown]
  - Seasonal allergy [Unknown]
  - Weight increased [Unknown]

NARRATIVE: CASE EVENT DATE: 20090903
